FAERS Safety Report 20618673 (Version 1)
Quarter: 2022Q1

REPORT INFORMATION
  Report Type: Spontaneous
  Country: PL (occurrence: PL)
  Receive Date: 20220322
  Receipt Date: 20220322
  Transmission Date: 20220424
  Serious: Yes (Hospitalization)
  Sender: FDA-Public Use
  Company Number: PL-STRIDES ARCOLAB LIMITED-2022SP002838

PATIENT
  Age: 15 Year
  Sex: Female

DRUGS (3)
  1. ETOPOSIDE [Suspect]
     Active Substance: ETOPOSIDE
     Indication: Ovarian germ cell teratoma
     Dosage: UNK, CYCLICAL (ADMINISTERED UNDER THE VIP CHEMOTHERAPY REGIMEN (4 CYCLES))
     Route: 065
     Dates: start: 2017
  2. IFOSFAMIDE [Suspect]
     Active Substance: IFOSFAMIDE
     Indication: Ovarian germ cell teratoma
     Dosage: UNK, CYCLICAL (ADMINISTERED UNDER THE VIP CHEMOTHERAPY REGIMEN (4 CYCLES) )
     Route: 065
     Dates: start: 2017
  3. CISPLATIN [Suspect]
     Active Substance: CISPLATIN
     Indication: Ovarian germ cell teratoma
     Dosage: UNK, CYCLICAL (ADMINISTERED UNDER THE VIP CHEMOTHERAPY REGIMEN (4 CYCLES))
     Route: 065
     Dates: start: 2017

REACTIONS (3)
  - Peritoneal gliomatosis [Recovered/Resolved]
  - Growing teratoma syndrome [Recovered/Resolved]
  - Off label use [Unknown]

NARRATIVE: CASE EVENT DATE: 20170101
